FAERS Safety Report 16571681 (Version 1)
Quarter: 2019Q3

REPORT INFORMATION
  Report Type: Spontaneous
  Country: US (occurrence: US)
  Receive Date: 20190715
  Receipt Date: 20190715
  Transmission Date: 20191004
  Serious: No
  Sender: FDA-Public Use
  Company Number: US-AMGEN-USASP2019108805

PATIENT
  Age: 83 Year
  Sex: Male

DRUGS (7)
  1. ZOLOFT [Concomitant]
     Active Substance: SERTRALINE HYDROCHLORIDE
  2. XTANDI [Concomitant]
     Active Substance: ENZALUTAMIDE
  3. ZYTIGA [Concomitant]
     Active Substance: ABIRATERONE ACETATE
  4. LUPRON [Concomitant]
     Active Substance: LEUPROLIDE ACETATE
  5. XGEVA [Suspect]
     Active Substance: DENOSUMAB
     Indication: PROSTATE CANCER METASTATIC
     Dosage: 120 MILLIGRAM, Q3MO
     Route: 065
     Dates: start: 2019
  6. BABY ASPIRIN [Concomitant]
     Active Substance: ASPIRIN
  7. BENADRYL [Concomitant]
     Active Substance: DIPHENHYDRAMINE HYDROCHLORIDE

REACTIONS (2)
  - Off label use [Unknown]
  - Dyspnoea [Unknown]
